FAERS Safety Report 6064458-7 (Version None)
Quarter: 2009Q1

REPORT INFORMATION
  Report Type: 
  Country: None (occurrence: None)
  Receive Date: 20090204
  Receipt Date: 20090203
  Transmission Date: 20090719
  Serious: Yes (Other)
  Sender: FDA-Public Use
  Company Number: US-BAYER-200813598BCC

PATIENT
  Sex: Male
  Weight: 64 kg

DRUGS (3)
  1. ASPIRIN [Suspect]
     Indication: CARDIOVASCULAR EVENT PROPHYLAXIS
     Dosage: TOTAL DAILY DOSE: 81 MG  UNIT DOSE: 81 MG
     Route: 048
  2. PREDNISONE [Concomitant]
     Dosage: TOTAL DAILY DOSE: 12.5 MG
  3. ALENDRONATE SODIUM [Concomitant]

REACTIONS (1)
  - EPISTAXIS [None]
